FAERS Safety Report 8267611-7 (Version None)
Quarter: 2012Q2

REPORT INFORMATION
  Report Type: 
  Country: None (occurrence: None)
  Receive Date: 20120409
  Receipt Date: 20120402
  Transmission Date: 20120825
  Serious: Yes (Hospitalization)
  Sender: FDA-Public Use
  Company Number: US-JNJFOC-20120401240

PATIENT
  Sex: Male
  Weight: 74.84 kg

DRUGS (1)
  1. STELARA [Suspect]
     Indication: PSORIASIS
     Route: 058
     Dates: start: 20110101, end: 20111201

REACTIONS (4)
  - SURGERY [None]
  - RENAL FAILURE CHRONIC [None]
  - POST PROCEDURAL COMPLICATION [None]
  - CARDIAC DISORDER [None]
